FAERS Safety Report 4622444-5 (Version None)
Quarter: 2005Q1

REPORT INFORMATION
  Report Type: 
  Country: None (occurrence: None)
  Receive Date: 20050317
  Receipt Date: 20040316
  Transmission Date: 20050727
  Serious: Yes (Hospitalization)
  Sender: FDA-Public Use
  Company Number: PHEH2004US03087

PATIENT
  Age: 32 Year
  Sex: Male

DRUGS (2)
  1. TRILEPTAL [Suspect]
     Indication: HYPOMANIA
     Dosage: 600 MG, BID, ORAL
     Route: 048
     Dates: start: 20030622, end: 20030625
  2. LEVAQUIN [Suspect]
     Dosage: 500 MG, ONCE/SINGLE, ORAL
     Route: 048
     Dates: start: 20050625, end: 20030625

REACTIONS (9)
  - ABSCESS OF EYELID [None]
  - EYE PAIN [None]
  - LIP BLISTER [None]
  - LIP EXFOLIATION [None]
  - OEDEMA PERIPHERAL [None]
  - PENILE ULCERATION [None]
  - SKIN DISORDER [None]
  - STEVENS-JOHNSON SYNDROME [None]
  - TONGUE BLISTERING [None]
